FAERS Safety Report 15583046 (Version 1)
Quarter: 2018Q4

REPORT INFORMATION
  Report Type: Spontaneous
  Country: GB (occurrence: GB)
  Receive Date: 20181105
  Receipt Date: 20181105
  Transmission Date: 20190205
  Serious: Yes (Other)
  Sender: FDA-Public Use
  Company Number: GB-CONCORDIA PHARMACEUTICALS INC.-E2B_00017252

PATIENT
  Age: 82 Year
  Sex: Male

DRUGS (3)
  1. METFORMIN [Suspect]
     Active Substance: METFORMIN HYDROCHLORIDE
  2. DIGOXIN. [Suspect]
     Active Substance: DIGOXIN
  3. APIXABAN [Suspect]
     Active Substance: APIXABAN

REACTIONS (2)
  - Bradycardia [Unknown]
  - Wrong patient received product [Unknown]
